FAERS Safety Report 15157086 (Version 3)
Quarter: 2020Q3

REPORT INFORMATION
  Report Type: Report from Study
  Country: CN (occurrence: CN)
  Receive Date: 20180718
  Receipt Date: 20180824
  Transmission Date: 20201105
  Serious: Yes (Hospitalization)
  Sender: FDA-Public Use
  Company Number: CN-ASTRAZENECA-2018SE88816

PATIENT
  Age: 24727 Day
  Sex: Male

DRUGS (19)
  1. ETOPOSIDE. [Suspect]
     Active Substance: ETOPOSIDE
     Indication: SMALL CELL LUNG CANCER
     Dosage: 180.00 MG/M2
     Route: 065
     Dates: start: 20180709, end: 20180709
  2. ETOPOSIDE. [Suspect]
     Active Substance: ETOPOSIDE
     Indication: SMALL CELL LUNG CANCER
     Dosage: 180.00 MG/M2
     Route: 065
     Dates: start: 20180801
  3. MEDI4736 [Suspect]
     Active Substance: DURVALUMAB
     Indication: SMALL CELL LUNG CANCER
     Route: 042
     Dates: start: 20180614, end: 20180614
  4. MEDI4736 [Suspect]
     Active Substance: DURVALUMAB
     Indication: SMALL CELL LUNG CANCER
     Route: 042
     Dates: start: 20180709, end: 20180709
  5. ETOPOSIDE. [Suspect]
     Active Substance: ETOPOSIDE
     Indication: SMALL CELL LUNG CANCER
     Dosage: 180.00 MG/M2
     Route: 065
     Dates: start: 20180614, end: 20180614
  6. TREMELIMUMAB. [Suspect]
     Active Substance: TREMELIMUMAB
     Indication: SMALL CELL LUNG CANCER
     Route: 042
     Dates: start: 20180730
  7. ETOPOSIDE. [Suspect]
     Active Substance: ETOPOSIDE
     Indication: SMALL CELL LUNG CANCER
     Dosage: 180.00 MG/M2
     Route: 065
     Dates: start: 20180615, end: 20180615
  8. ETOPOSIDE. [Suspect]
     Active Substance: ETOPOSIDE
     Indication: SMALL CELL LUNG CANCER
     Dosage: 180.00 MG/M2
     Route: 065
     Dates: start: 20180710, end: 20180710
  9. MEDI4736 [Suspect]
     Active Substance: DURVALUMAB
     Indication: SMALL CELL LUNG CANCER
     Route: 042
     Dates: start: 20180730
  10. TREMELIMUMAB. [Suspect]
     Active Substance: TREMELIMUMAB
     Indication: SMALL CELL LUNG CANCER
     Route: 042
     Dates: start: 20180614, end: 20180614
  11. CARBOPLATIN. [Suspect]
     Active Substance: CARBOPLATIN
     Indication: SMALL CELL LUNG CANCER
     Dosage: 501 AUC
     Route: 065
     Dates: start: 20180730
  12. ETOPOSIDE. [Suspect]
     Active Substance: ETOPOSIDE
     Indication: SMALL CELL LUNG CANCER
     Dosage: 180.00 MG/M2
     Route: 065
     Dates: start: 20180616, end: 20180616
  13. LEUCOGEN [Concomitant]
     Active Substance: LEUCOGEN
     Indication: LEUKOCYTOSIS
     Route: 048
     Dates: start: 20180616, end: 20180703
  14. ETOPOSIDE. [Suspect]
     Active Substance: ETOPOSIDE
     Indication: SMALL CELL LUNG CANCER
     Dosage: 180.00 MG/M2
     Route: 065
     Dates: start: 20180711, end: 20180711
  15. CARBOPLATIN. [Suspect]
     Active Substance: CARBOPLATIN
     Indication: SMALL CELL LUNG CANCER
     Dosage: 686.00 AUC
     Route: 065
     Dates: start: 20180614, end: 20180614
  16. ETOPOSIDE. [Suspect]
     Active Substance: ETOPOSIDE
     Indication: SMALL CELL LUNG CANCER
     Dosage: 180.00 MG/M2
     Route: 065
     Dates: start: 20180730, end: 20180730
  17. TREMELIMUMAB. [Suspect]
     Active Substance: TREMELIMUMAB
     Indication: SMALL CELL LUNG CANCER
     Route: 042
     Dates: start: 20180709, end: 20180709
  18. ETOPOSIDE. [Suspect]
     Active Substance: ETOPOSIDE
     Indication: SMALL CELL LUNG CANCER
     Dosage: 180.00 MG/M2
     Route: 065
     Dates: start: 20180731, end: 20180731
  19. CAPTOPRIL. [Concomitant]
     Active Substance: CAPTOPRIL
     Indication: LEUKOCYTOSIS
     Dosage: 2 TABS DAILY
     Route: 048
     Dates: start: 20180608

REACTIONS (1)
  - Hepatic function abnormal [Not Recovered/Not Resolved]

NARRATIVE: CASE EVENT DATE: 20180704
